FAERS Safety Report 8011870-2 (Version None)
Quarter: 2011Q4

REPORT INFORMATION
  Report Type: 
  Country: None (occurrence: None)
  Receive Date: 20111228
  Receipt Date: 20111222
  Transmission Date: 20120403
  Serious: Yes (Hospitalization)
  Sender: FDA-Public Use
  Company Number: RU-JNJFOC-20111210396

PATIENT
  Sex: Female

DRUGS (8)
  1. XARELTO [Suspect]
     Route: 048
  2. WARFARIN SODIUM [Concomitant]
  3. WARFARIN SODIUM [Concomitant]
  4. XARELTO [Suspect]
     Indication: THROMBOSIS PROPHYLAXIS
     Route: 048
  5. WARFARIN SODIUM [Concomitant]
     Indication: THROMBOSIS PROPHYLAXIS
  6. XARELTO [Suspect]
     Indication: HIP ARTHROPLASTY
     Route: 048
  7. XARELTO [Suspect]
     Route: 048
  8. WARFARIN SODIUM [Concomitant]
     Indication: HIP ARTHROPLASTY

REACTIONS (1)
  - PULMONARY EMBOLISM [None]
